FAERS Safety Report 7458927-2 (Version None)
Quarter: 2011Q2

REPORT INFORMATION
  Report Type: 
  Country: None (occurrence: None)
  Receive Date: 20110504
  Receipt Date: 20110502
  Transmission Date: 20111010
  Serious: Yes (Hospitalization)
  Sender: FDA-Public Use
  Company Number: FR-ABBOTT-11P-056-0723112-00

PATIENT
  Age: 12 Month
  Sex: Male

DRUGS (6)
  1. MELATONIN [Suspect]
     Indication: PRODUCT USED FOR UNKNOWN INDICATION
     Route: 048
     Dates: start: 20101125, end: 20101208
  2. KEPPRA [Concomitant]
     Indication: PRODUCT USED FOR UNKNOWN INDICATION
     Dates: start: 20100901
  3. URBANYL [Suspect]
     Indication: EPILEPSY
     Route: 048
     Dates: start: 20100701
  4. MICROPAKINE L.P [Suspect]
     Indication: EPILEPSY
     Route: 048
     Dates: start: 20101129, end: 20101208
  5. MICROPAKINE L.P [Suspect]
     Route: 048
     Dates: end: 20101129
  6. DIACOMIT [Suspect]
     Indication: EPILEPSY
     Route: 048
     Dates: start: 20101101

REACTIONS (4)
  - HYPERAMMONAEMIA [None]
  - SOMNOLENCE [None]
  - INSOMNIA [None]
  - DRUG INTERACTION [None]
